FAERS Safety Report 4777601-4 (Version None)
Quarter: 2005Q3

REPORT INFORMATION
  Report Type: 
  Country: None (occurrence: None)
  Receive Date: 20050921
  Receipt Date: 20050906
  Transmission Date: 20060218
  Serious: Yes (Hospitalization, Other)
  Sender: FDA-Public Use
  Company Number: USA0509107331

PATIENT
  Age: 64 Year
  Sex: Male

DRUGS (2)
  1. HUMULIN R [Suspect]
     Indication: DIABETES MELLITUS
     Dosage: 100 U DAY
  2. HUMULIN N [Suspect]
     Indication: DIABETES MELLITUS
     Dosage: 100 U DAY

REACTIONS (12)
  - BLOOD GLUCOSE DECREASED [None]
  - BLOOD GLUCOSE INCREASED [None]
  - CORONARY ARTERY SURGERY [None]
  - EXERCISE CAPACITY DECREASED [None]
  - FALL [None]
  - FOOT FRACTURE [None]
  - GASTRIC DISORDER [None]
  - MALAISE [None]
  - NERVOUSNESS [None]
  - PHARMACEUTICAL PRODUCT COMPLAINT [None]
  - POLYP [None]
  - WEIGHT DECREASED [None]
